FAERS Safety Report 14920603 (Version 2)
Quarter: 2018Q4

REPORT INFORMATION
  Report Type: Spontaneous
  Country: US (occurrence: US)
  Receive Date: 20180521
  Receipt Date: 20181016
  Transmission Date: 20190204
  Serious: Yes (Other)
  Sender: FDA-Public Use
  Company Number: US-SHIRE-US201819139

PATIENT
  Sex: Female

DRUGS (1)
  1. PENTASA [Suspect]
     Active Substance: MESALAMINE
     Indication: CROHN^S DISEASE
     Dosage: 500 MG, 2X/DAY:BID
     Route: 048

REACTIONS (7)
  - Expired product administered [Unknown]
  - Confusional state [Unknown]
  - Reading disorder [Unknown]
  - Hypoacusis [Unknown]
  - Nausea [Unknown]
  - Disability [Unknown]
  - Off label use [Unknown]

NARRATIVE: CASE EVENT DATE: 20180514
